FAERS Safety Report 8823785 (Version 2)
Quarter: 2012Q4

REPORT INFORMATION
  Report Type: 
  Country: DE (occurrence: DE)
  Receive Date: 20121003
  Receipt Date: 20121009
  Transmission Date: 20130627
  Serious: Yes (Hospitalization)
  Sender: FDA-Public Use
  Company Number: DE-B.I. PHARMACEUTICALS,INC./RIDGEFIELD-2012-DE-02288DE

PATIENT
  Age: 74 Year
  Sex: Female
  Weight: 55 kg

DRUGS (8)
  1. PRADAXA [Suspect]
     Indication: ATRIAL FIBRILLATION
     Dosage: 150 mg
     Dates: start: 20120806, end: 20120826
  2. BISOPROLOL [Concomitant]
     Dosage: 20 mg
  3. DIGIMERCK [Concomitant]
     Dosage: 0.07 NR
  4. XIPAMID [Concomitant]
     Dosage: 40 mg
  5. APPROVEL [Concomitant]
     Dosage: 150 mg
  6. SIMVASTATIN [Concomitant]
     Dosage: 40 mg
  7. GARBAPENTIN [Concomitant]
     Dosage: 600 mg
  8. INSULIN [Concomitant]

REACTIONS (2)
  - Intestinal polyp haemorrhage [Recovered/Resolved]
  - Procedural complication [Recovered/Resolved]
